FAERS Safety Report 6579539-9 (Version None)
Quarter: 2010Q1

REPORT INFORMATION
  Report Type: 
  Country: None (occurrence: None)
  Receive Date: 20100212
  Receipt Date: 20100209
  Transmission Date: 20100710
  Serious: No
  Sender: FDA-Public Use
  Company Number: A0843743A

PATIENT
  Age: 45 Year
  Sex: Male

DRUGS (3)
  1. RELENZA [Suspect]
     Indication: INFLUENZA
     Dosage: 20MG TWICE PER DAY
     Route: 055
     Dates: start: 20100206
  2. LODRANE [Concomitant]
  3. HYCODAN [Concomitant]

REACTIONS (2)
  - OVERDOSE [None]
  - VOMITING [None]
